FAERS Safety Report 10144982 (Version 4)
Quarter: 2014Q3

REPORT INFORMATION
  Report Type: Report from Study
  Country: FR (occurrence: FR)
  Receive Date: 20140501
  Receipt Date: 20140702
  Transmission Date: 20150326
  Serious: Yes (Hospitalization)
  Sender: FDA-Public Use
  Company Number: FR-AMGEN-FRACT2014031353

PATIENT
  Age: 42 Year
  Sex: Female
  Weight: 38 kg

DRUGS (2)
  1. DABRAFENIB [Concomitant]
     Active Substance: DABRAFENIB
     Indication: COLORECTAL CANCER
     Dosage: 150MG TWICE PER DAY
     Route: 048
     Dates: start: 20140407
  2. PANITUMUMAB [Suspect]
     Active Substance: PANITUMUMAB
     Indication: COLORECTAL CANCER
     Dosage: 6 MG/KG, EVERY TWO WEEKS
     Route: 042
     Dates: start: 20140407

REACTIONS (2)
  - Pyrexia [Recovered/Resolved]
  - Diarrhoea haemorrhagic [Recovered/Resolved]

NARRATIVE: CASE EVENT DATE: 20140417
